FAERS Safety Report 5834517-X (Version None)
Quarter: 2008Q3

REPORT INFORMATION
  Report Type: 
  Country: None (occurrence: None)
  Receive Date: 20080805
  Receipt Date: 20080724
  Transmission Date: 20090109
  Serious: Yes (Hospitalization)
  Sender: FDA-Public Use
  Company Number: FR-PFIZER INC-2008062045

PATIENT
  Sex: Female

DRUGS (6)
  1. HYDROCORTISONE SODIUM SUCCINATE [Suspect]
     Indication: IMMATURE RESPIRATORY SYSTEM
     Route: 042
     Dates: start: 20080523, end: 20080523
  2. NICARDIPINE HYDROCHLORIDE [Suspect]
     Route: 042
     Dates: start: 20080523, end: 20080525
  3. ALBUTEROL [Suspect]
     Indication: HIGH RISK PREGNANCY
     Route: 054
     Dates: start: 20080523, end: 20080523
  4. FERROUS SULFATE TAB [Concomitant]
  5. FOLIC ACID [Concomitant]
  6. POTASSIUM CHLORIDE [Concomitant]

REACTIONS (2)
  - LEFT VENTRICULAR FAILURE [None]
  - PULMONARY OEDEMA [None]
